FAERS Safety Report 26058186 (Version 1)
Quarter: 2025Q4

REPORT INFORMATION
  Report Type: Spontaneous
  Country: US (occurrence: US)
  Receive Date: 20251118
  Receipt Date: 20251118
  Transmission Date: 20260117
  Serious: No
  Sender: AUROBINDO
  Company Number: US-AUROBINDO-AUR-APL-2024-063929

PATIENT
  Age: 35 Year
  Sex: Male
  Weight: 113.3 kg

DRUGS (6)
  1. CLONAZEPAM [Suspect]
     Active Substance: CLONAZEPAM
     Indication: Panic attack
     Dosage: UNK (TOOK THE MEDICATION THIS MORNING)
     Route: 065
     Dates: start: 20241215, end: 20241220
  2. CLONAZEPAM [Suspect]
     Active Substance: CLONAZEPAM
     Indication: Anxiety
  3. CLONAZEPAM [Suspect]
     Active Substance: CLONAZEPAM
     Indication: Depression
  4. CLONAZEPAM [Suspect]
     Active Substance: CLONAZEPAM
     Indication: Post-traumatic stress disorder
  5. CLONAZEPAM [Suspect]
     Active Substance: CLONAZEPAM
     Indication: Obsessive-compulsive disorder
  6. LEXAPRO [Concomitant]
     Active Substance: ESCITALOPRAM OXALATE
     Indication: Product used for unknown indication
     Dosage: UNK
     Route: 065
     Dates: start: 20241215

REACTIONS (2)
  - Drug ineffective [Unknown]
  - Product quality issue [Unknown]

NARRATIVE: CASE EVENT DATE: 20241215
